FAERS Safety Report 21203329 (Version 2)
Quarter: 2022Q3

REPORT INFORMATION
  Report Type: Spontaneous
  Country: US (occurrence: US)
  Receive Date: 20220811
  Receipt Date: 20220901
  Transmission Date: 20221027
  Serious: Yes (Hospitalization, Other)
  Sender: FDA-Public Use
  Company Number: US-TEVA-2022-US-2062868

PATIENT
  Age: 11 Month
  Sex: Male

DRUGS (6)
  1. CARBOPLATIN [Suspect]
     Active Substance: CARBOPLATIN
     Indication: Osteoma cutis
     Dosage: 3 CYCLES
     Route: 065
  2. VINCRISTINE [Suspect]
     Active Substance: VINCRISTINE
     Indication: Osteoma cutis
     Dosage: INDUCTION CHEMOTHERAPY REGIMEN; 3 CYCLES
     Route: 065
  3. CISPLATIN [Suspect]
     Active Substance: CISPLATIN
     Indication: Osteoma cutis
     Dosage: INDUCTION CHEMOTHERAPY REGIMEN; 3 CYCLES
     Route: 065
  4. ETOPOSIDE [Suspect]
     Active Substance: ETOPOSIDE
     Indication: Osteoma cutis
     Dosage: INDUCTION CHEMOTHERAPY REGIMEN; 3 CYCLES
     Route: 065
  5. CYCLOPHOSPHAMIDE [Suspect]
     Active Substance: CYCLOPHOSPHAMIDE
     Indication: Osteoma cutis
     Dosage: INDUCTION CHEMOTHERAPY REGIMEN; 3 CYCLES
     Route: 065
  6. THIOTEPA [Suspect]
     Active Substance: THIOTEPA
     Indication: Osteoma cutis
     Dosage: HIGH-DOSE; 3 CYCLES
     Route: 065

REACTIONS (5)
  - Mucosal inflammation [Unknown]
  - Myelosuppression [Unknown]
  - Deafness neurosensory [Unknown]
  - Vocal cord paralysis [Unknown]
  - Dysphagia [Unknown]
